FAERS Safety Report 8457829 (Version 2)
Quarter: 2013Q2

REPORT INFORMATION
  Report Type: Spontaneous
  Country: US (occurrence: None)
  Receive Date: 20120227
  Receipt Date: 20120525
  Transmission Date: 20140414
  Serious: Yes (Hospitalization)
  Sender: FDA-Public Use
  Company Number: 341468

PATIENT
  Age: 65 Year
  Sex: Female
  Weight: 96.1 kg

DRUGS (6)
  1. LIRAGLUTIDE RECOMBINANT [Suspect]
     Indication: DIABETES MELLITUS INADEQUATE CONTROL
     Dosage: SUBCUTANEOUS
     Route: 058
     Dates: start: 20111012, end: 201111
  2. LEVOTHYROXINE /00068002/ (LEVOTHYROXINE SODIUM) [Concomitant]
  3. VALTREX [Concomitant]
  4. LISINOPRIL /00894002/ (LISINOPRIL DIHYDRATE) [Concomitant]
  5. LOVASTATIN [Concomitant]
  6. METFORMIN /00082702/ (METFORMIN HYDROCHLORIDE) [Concomitant]

REACTIONS (1)
  - PANCREATITIS ACUTE [None]
